FAERS Safety Report 5574657-6 (Version None)
Quarter: 2007Q4

REPORT INFORMATION
  Report Type: 
  Country: None (occurrence: None)
  Receive Date: 20071226
  Receipt Date: 20071226
  Transmission Date: 20080405
  Serious: No
  Sender: FDA-Public Use
  Company Number: None

PATIENT
  Age: 51 Year
  Sex: Female
  Weight: 68.0396 kg

DRUGS (1)
  1. LEVAQUIN [Suspect]
     Indication: ARTHROPOD BITE
     Dosage: 1 500MG. TABLET ONCE PER DAY PO
     Route: 048
     Dates: start: 20071202, end: 20071209

REACTIONS (9)
  - ARTHRALGIA [None]
  - ASTHENIA [None]
  - FINGER DEFORMITY [None]
  - INSOMNIA [None]
  - OEDEMA PERIPHERAL [None]
  - PAIN [None]
  - PAIN IN EXTREMITY [None]
  - SKIN DISCOLOURATION [None]
  - SKIN WARM [None]
